FAERS Safety Report 6966946-5 (Version None)
Quarter: 2010Q3

REPORT INFORMATION
  Report Type: 
  Country: None (occurrence: None)
  Receive Date: 20100906
  Receipt Date: 20100830
  Transmission Date: 20110219
  Serious: Yes (Other)
  Sender: FDA-Public Use
  Company Number: BR-BRISTOL-MYERS SQUIBB COMPANY-15268667

PATIENT
  Age: 67 Year
  Sex: Female

DRUGS (9)
  1. ONGLYZA [Suspect]
     Indication: DIABETES MELLITUS
     Dosage: INTERRUPTED:AUG10
     Route: 048
     Dates: start: 20100820
  2. METFORMIN HCL [Suspect]
  3. GLYBURIDE [Concomitant]
  4. SIMVASTATIN [Concomitant]
  5. CHLORTHALIDONE [Concomitant]
  6. AMLODIPINE [Concomitant]
  7. ENALAPRIL [Concomitant]
  8. CLOPIDOGREL BISULFATE [Concomitant]
  9. CALCIUM [Concomitant]

REACTIONS (2)
  - HYPERSENSITIVITY [None]
  - PNEUMONIA [None]
